FAERS Safety Report 12278180 (Version 1)
Quarter: 2016Q2

REPORT INFORMATION
  Report Type: Spontaneous
  Country: US (occurrence: US)
  Receive Date: 20160418
  Receipt Date: 20160418
  Transmission Date: 20160815
  Serious: No
  Sender: FDA-Public Use
  Company Number: US-MDT-ADR-2016-00046

PATIENT
  Age: 64 Year
  Sex: Male

DRUGS (2)
  1. BACLOFEN. [Concomitant]
     Active Substance: BACLOFEN
     Route: 048
  2. LIORESAL [Suspect]
     Active Substance: BACLOFEN
     Route: 037
     Dates: start: 20151207

REACTIONS (4)
  - Limb discomfort [Recovered/Resolved]
  - Hypotonia [Recovered/Resolved]
  - Fatigue [Recovered/Resolved]
  - Therapeutic response decreased [Recovered/Resolved]
